FAERS Safety Report 9527807 (Version 1)
Quarter: 2013Q1

REPORT INFORMATION
  Report Type: Spontaneous
  Country: US (occurrence: None)
  Receive Date: 20130314
  Receipt Date: 20130314
  Transmission Date: 20140127
  Serious: No
  Sender: FDA-Public Use
  Company Number: 1210USA014377

PATIENT
  Age: 48 Year
  Sex: Female

DRUGS (3)
  1. RIBAVIRIN (RIBAVIRIN) CAPSULE [Suspect]
     Indication: HEPATITIS C
     Dosage: UNK, ORAL
     Route: 048
     Dates: start: 20121015
  2. VICTRELIS (BOCEPREVIR) CAPSULE [Suspect]
     Indication: HEPATITIS C
     Dosage: UNK, ORAL
     Route: 048
     Dates: start: 20121119
  3. PEGASYS (PEGINTERFERON ALFA-2A) [Concomitant]

REACTIONS (10)
  - Dysgeusia [None]
  - Malaise [None]
  - Lip dry [None]
  - Lip pain [None]
  - Cystitis [None]
  - Nausea [None]
  - Headache [None]
  - Nodule [None]
  - Rash [None]
  - Leukopenia [None]
